FAERS Safety Report 8239330-4 (Version None)
Quarter: 2012Q1

REPORT INFORMATION
  Report Type: 
  Country: None (occurrence: None)
  Receive Date: 20120326
  Receipt Date: 20120305
  Transmission Date: 20120608
  Serious: Yes (Hospitalization, Other)
  Sender: FDA-Public Use
  Company Number: 2012P1008906

PATIENT
  Sex: Male
  Weight: 140.6151 kg

DRUGS (4)
  1. WARFARIN SODIUM [Suspect]
     Indication: ATRIAL FIBRILLATION
     Dosage: 5-10 MG;QD;PO
     Route: 048
     Dates: start: 20000101, end: 20110801
  2. UNSPECIFIED MEDICATIONS [Concomitant]
  3. TAXOTERE [Concomitant]
  4. CASODEX [Suspect]
     Dosage: 5-10 MG;QD;PO
     Route: 048
     Dates: start: 20111201, end: 20120229

REACTIONS (3)
  - INTERNATIONAL NORMALISED RATIO INCREASED [None]
  - EYE HAEMORRHAGE [None]
  - BLOOD URINE PRESENT [None]
